FAERS Safety Report 7041647-6 (Version None)
Quarter: 2010Q4

REPORT INFORMATION
  Report Type: 
  Country: None (occurrence: None)
  Receive Date: 20101013
  Receipt Date: 20090819
  Transmission Date: 20110411
  Serious: No
  Sender: FDA-Public Use
  Company Number: US-ASTRAZENECA-2009UW18668

PATIENT
  Sex: Male
  Weight: 123.4 kg

DRUGS (14)
  1. SYMBICORT [Suspect]
     Route: 055
     Dates: start: 20090101
  2. SPIRONOLACTONE [Concomitant]
  3. ALBUTEROL [Concomitant]
  4. METFORMIN [Concomitant]
     Indication: DIABETES MELLITUS
  5. PRILOSEC [Concomitant]
  6. COREG [Concomitant]
     Indication: CARDIAC DISORDER
  7. ZOCOR [Concomitant]
     Indication: BLOOD CHOLESTEROL
  8. ASPIRIN [Concomitant]
     Indication: CARDIAC DISORDER
  9. DIGOXIN [Concomitant]
     Indication: CARDIAC DISORDER
  10. LISINOPRIL [Concomitant]
     Indication: HYPERTENSION
  11. ANDROGEL [Concomitant]
     Indication: BLOOD TESTOSTERONE ABNORMAL
  12. NIACIN [Concomitant]
     Indication: CARDIAC DISORDER
  13. TOBRAMATE [Concomitant]
  14. TERAZOSIN HCL [Concomitant]

REACTIONS (2)
  - AGITATION [None]
  - DYSPNOEA [None]
